FAERS Safety Report 7605145-0 (Version None)
Quarter: 2011Q3

REPORT INFORMATION
  Report Type: 
  Country: None (occurrence: None)
  Receive Date: 20110713
  Receipt Date: 20110413
  Transmission Date: 20111222
  Serious: Yes (Other)
  Sender: FDA-Public Use
  Company Number: US-BAYER-2011-017927

PATIENT
  Sex: Male
  Weight: 83 kg

DRUGS (60)
  1. POTASSIUM CHLORIDE [Concomitant]
  2. PHOSLO [Concomitant]
  3. ANCEF [Concomitant]
  4. DARVOCET [Concomitant]
  5. ACETAMINOPHEN [Concomitant]
  6. LIPITOR [Concomitant]
  7. FLOMAX [Concomitant]
  8. ASCORBIC ACID [Concomitant]
  9. CLONIDINE [Concomitant]
  10. MAGNEVIST [Suspect]
     Indication: ANGIOGRAM
  11. PEPCID [Concomitant]
  12. CATAPRES [Concomitant]
  13. PERCOCET [Concomitant]
  14. PREVACID [Concomitant]
  15. RENAGEL [Concomitant]
  16. SODIUM POLYSTYRENE SULFONATE [Concomitant]
  17. MAGNEVIST [Suspect]
     Indication: NUCLEAR MAGNETIC RESONANCE IMAGING
     Dosage: 20 ML, ONCE
     Route: 042
     Dates: start: 19980518, end: 19980518
  18. OMNISCAN [Suspect]
     Indication: ANGIOGRAM
  19. LASIX [Concomitant]
  20. HYDRALAZINE HCL [Concomitant]
  21. NEPHROCAPS [VIT C,VIT H,B12,B9,B3,PANTOTHEN AC,B6,B2,B1 HCL] [Concomitant]
  22. PREDNISONE [Concomitant]
  23. CYTOXAN [Concomitant]
  24. DIURIL [Concomitant]
  25. RENVELA [Concomitant]
  26. MAGNEVIST [Suspect]
     Indication: NUCLEAR MAGNETIC RESONANCE IMAGING BRAIN
  27. MULTIHANCE [Suspect]
     Indication: ANGIOGRAM
  28. NEURONTIN [Concomitant]
  29. SENSIPAR [Concomitant]
  30. HUMULIN [INSULIN HUMAN INJECTION, ISOPHANE] [Concomitant]
  31. MAGNEVIST [Suspect]
  32. PROHANCE [Suspect]
     Indication: NUCLEAR MAGNETIC RESONANCE IMAGING
  33. NORVASC [Concomitant]
  34. MECLIZINE [Concomitant]
  35. DIOVAN [Concomitant]
  36. NEXIUM [Concomitant]
  37. KAYEXALATE [Concomitant]
  38. OMNISCAN [Suspect]
     Indication: NUCLEAR MAGNETIC RESONANCE IMAGING
  39. PROHANCE [Suspect]
     Indication: ANGIOGRAM
  40. NORVASC [Concomitant]
  41. ZAROXOLYN [Concomitant]
  42. VERPAMIL HCL [Concomitant]
  43. ASPIRIN [Concomitant]
  44. COUMADIN [Concomitant]
  45. LEVOTHYROXINE SODIUM [Concomitant]
  46. OPTIMARK [Suspect]
     Indication: ANGIOGRAM
  47. MULTIHANCE [Suspect]
     Indication: NUCLEAR MAGNETIC RESONANCE IMAGING
  48. DEMADEX [Concomitant]
  49. EPOGEN [Concomitant]
  50. MONOPRIL [Concomitant]
  51. ACCUPRIL [Concomitant]
  52. AMIODARONE HCL [Concomitant]
  53. WARFARIN SODIUM [Concomitant]
  54. OPTIMARK [Suspect]
     Indication: NUCLEAR MAGNETIC RESONANCE IMAGING
  55. COVERA-HS [Concomitant]
  56. PLAVIX [Concomitant]
  57. LOPRESSOR [Concomitant]
  58. NOVOLIN [INSULIN] [Concomitant]
  59. FISH OIL [Concomitant]
  60. PROCRIT [Concomitant]

REACTIONS (13)
  - OEDEMA PERIPHERAL [None]
  - NEPHROGENIC SYSTEMIC FIBROSIS [None]
  - SKIN DISCOLOURATION [None]
  - PRURITUS [None]
  - MUSCULAR WEAKNESS [None]
  - MOBILITY DECREASED [None]
  - RASH [None]
  - SKIN TIGHTNESS [None]
  - JOINT RANGE OF MOTION DECREASED [None]
  - PAIN [None]
  - DRY SKIN [None]
  - STASIS DERMATITIS [None]
  - SKIN HYPERTROPHY [None]
